FAERS Safety Report 26203165 (Version 2)
Quarter: 2025Q4

REPORT INFORMATION
  Report Type: Report from Study
  Country: CA (occurrence: CA)
  Receive Date: 20251226
  Receipt Date: 20251230
  Transmission Date: 20260117
  Serious: Yes (Other)
  Sender: ROCHE
  Company Number: CA-ROCHE-10000461792

PATIENT
  Age: 44 Year
  Sex: Female

DRUGS (25)
  1. ACTEMRA ACTPEN [Suspect]
     Active Substance: TOCILIZUMAB
     Indication: Still^s disease
     Dosage: DRUG DOSE FIRST ADMINISTERED IS 162 MG MILLIGRAM(S)
     Route: 058
     Dates: start: 20231002, end: 2024
  2. ACTEMRA ACTPEN [Suspect]
     Active Substance: TOCILIZUMAB
     Dosage: DRUG DOSE FIRST ADMINISTERED IS 162 MG MILLIGRAM(S)
     Route: 058
     Dates: start: 2024
  3. ACTONEL [Concomitant]
     Active Substance: RISEDRONATE SODIUM
  4. ALMOTRIPTAN [Concomitant]
     Active Substance: ALMOTRIPTAN
  5. APIXABAN [Concomitant]
     Active Substance: APIXABAN
  6. BENADRYL [Concomitant]
     Active Substance: DIPHENHYDRAMINE HYDROCHLORIDE
  7. BIOTIN [Concomitant]
     Active Substance: BIOTIN
  8. CALCIUM CARBONATE [Concomitant]
     Active Substance: CALCIUM CARBONATE
  9. CLONAZEPAM [Concomitant]
     Active Substance: CLONAZEPAM
  10. GABAPENTIN [Concomitant]
     Active Substance: GABAPENTIN
  11. GRAVOL [Concomitant]
     Active Substance: DIMENHYDRINATE
  12. MAGNESIUM [Concomitant]
     Active Substance: MAGNESIUM
  13. OXYCODONE [Concomitant]
     Active Substance: OXYCODONE
  14. PANTOPRAZOLE [Concomitant]
     Active Substance: PANTOPRAZOLE
  15. PRAZOSIN [Concomitant]
     Active Substance: PRAZOSIN
  16. PREDNISONE [Concomitant]
     Active Substance: PREDNISONE
  17. RANITIDINE [Concomitant]
     Active Substance: RANITIDINE
  18. THEOPHYLLINE [Concomitant]
     Active Substance: THEOPHYLLINE
  19. TRAZODONE [Concomitant]
     Active Substance: TRAZODONE HYDROCHLORIDE
  20. Turmeric gummies [Concomitant]
  21. TYLENOL [Concomitant]
     Active Substance: ACETAMINOPHEN
  22. VENLAFAXINE [Concomitant]
     Active Substance: VENLAFAXINE HYDROCHLORIDE
  23. VITAMIN B12 [Concomitant]
     Active Substance: CYANOCOBALAMIN
  24. VITAMIN C [Concomitant]
     Active Substance: ASCORBIC ACID
  25. VITAMIN D3 [Concomitant]
     Active Substance: CHOLECALCIFEROL

REACTIONS (4)
  - Nasopharyngitis [Unknown]
  - Osteomyelitis [Unknown]
  - Lower respiratory tract infection [Unknown]
  - Infection [Unknown]

NARRATIVE: CASE EVENT DATE: 20251212
